FAERS Safety Report 14700791 (Version 1)
Quarter: 2018Q1

REPORT INFORMATION
  Report Type: Spontaneous
  Country: US (occurrence: US)
  Receive Date: 20180330
  Receipt Date: 20180330
  Transmission Date: 20180509
  Serious: Yes (Hospitalization, Other)
  Sender: FDA-Public Use
  Company Number: US-ASTRAZENECA-2018SE38776

PATIENT
  Age: 25747 Day
  Sex: Male
  Weight: 113.4 kg

DRUGS (3)
  1. SYMBICORT [Suspect]
     Active Substance: BUDESONIDE\FORMOTEROL FUMARATE DIHYDRATE
     Indication: CHRONIC OBSTRUCTIVE PULMONARY DISEASE
     Dosage: 160/4.5 MCG
     Route: 055
  2. SYMBICORT [Suspect]
     Active Substance: BUDESONIDE\FORMOTEROL FUMARATE DIHYDRATE
     Indication: CHRONIC OBSTRUCTIVE PULMONARY DISEASE
     Dosage: 80/4.5 MCG
     Route: 055
     Dates: start: 20180315
  3. SYMBICORT [Suspect]
     Active Substance: BUDESONIDE\FORMOTEROL FUMARATE DIHYDRATE
     Indication: CHRONIC OBSTRUCTIVE PULMONARY DISEASE
     Dosage: 160/4.5 MCG, 2 INHALATIONS TWICE A DAY
     Route: 055
     Dates: start: 2016

REACTIONS (6)
  - Blood pressure decreased [Unknown]
  - Diverticulitis [Unknown]
  - Faeces discoloured [Unknown]
  - Confusional state [Unknown]
  - Circumstance or information capable of leading to medication error [Unknown]
  - Polyp [Unknown]

NARRATIVE: CASE EVENT DATE: 20180226
